FAERS Safety Report 7791841-1 (Version None)
Quarter: 2011Q4

REPORT INFORMATION
  Report Type: 
  Country: None (occurrence: None)
  Receive Date: 20111003
  Receipt Date: 20110920
  Transmission Date: 20120403
  Serious: Yes (Other)
  Sender: FDA-Public Use
  Company Number: US-BAYER-2011-080795

PATIENT
  Age: 23 Year
  Sex: Female
  Weight: 48.98 kg

DRUGS (12)
  1. EXCEDRIN [ACETYLSALICYLIC ACID,CAFFEINE,PARACETAMOL,SALICYLAMIDE] [Concomitant]
  2. IBUPROFEN (ADVIL) [Concomitant]
  3. YASMIN [Suspect]
     Dosage: UNK
     Dates: start: 20050101, end: 20080101
  4. ELMIRON [Concomitant]
  5. NOREL [Concomitant]
  6. YAZ [Suspect]
     Dosage: UNK
     Dates: start: 20050101, end: 20080101
  7. TYLENOL-500 [Concomitant]
  8. ALLEGRA [Concomitant]
  9. HYDROCHLOROTHIAZIDE [Concomitant]
  10. MULTI-VITAMINS [Concomitant]
  11. ZOCOR [Concomitant]
  12. ASCORBIC ACID [Concomitant]

REACTIONS (2)
  - CHOLELITHIASIS [None]
  - HORMONE LEVEL ABNORMAL [None]
